FAERS Safety Report 5372091-5 (Version None)
Quarter: 2007Q2

REPORT INFORMATION
  Report Type: 
  Country: None (occurrence: None)
  Receive Date: 20070615
  Receipt Date: 20070426
  Transmission Date: 20071010
  Serious: No
  Sender: FDA-Public Use
  Company Number: SP01221

PATIENT
  Sex: Female

DRUGS (1)
  1. XIFAXAN [Suspect]
     Indication: CLOSTRIDIAL INFECTION
     Dosage: 600 MG (200 MG, 3 IN 1 D)
     Dates: start: 20070401

REACTIONS (1)
  - DRUG INEFFECTIVE [None]
